FAERS Safety Report 7059349-9 (Version None)
Quarter: 2010Q4

REPORT INFORMATION
  Report Type: 
  Country: None (occurrence: None)
  Receive Date: 20101025
  Receipt Date: 20101015
  Transmission Date: 20110411
  Serious: No
  Sender: FDA-Public Use
  Company Number: 2007BI018035

PATIENT
  Age: 30 Year
  Sex: Male

DRUGS (1)
  1. TYSABRI [Suspect]
     Indication: MULTIPLE SCLEROSIS
     Route: 042
     Dates: start: 20070125

REACTIONS (5)
  - ASTHENIA [None]
  - FATIGUE [None]
  - PRURITUS [None]
  - WEIGHT DECREASED [None]
  - WEIGHT INCREASED [None]
